FAERS Safety Report 15074683 (Version 1)
Quarter: 2018Q2

REPORT INFORMATION
  Report Type: Report from Study
  Country: US (occurrence: US)
  Receive Date: 20180627
  Receipt Date: 20180627
  Transmission Date: 20180711
  Serious: No
  Sender: FDA-Public Use
  Company Number: US-SAOL THERAPEUTICS-2017SAO01099

PATIENT
  Age: 68 Year
  Sex: Female

DRUGS (8)
  1. DILAUDID [Suspect]
     Active Substance: HYDROMORPHONE HYDROCHLORIDE
     Dosage: 4.209 MG, \DAY
     Dates: start: 20151029
  2. CLONIDINE. [Suspect]
     Active Substance: CLONIDINE
     Dosage: 210.47 ?G, \DAY
     Dates: start: 20151029
  3. BUPIVACAINE. [Suspect]
     Active Substance: BUPIVACAINE
     Dosage: 26.823 MG, \DAY
     Route: 037
     Dates: start: 20151029
  4. BUPIVACAINE. [Suspect]
     Active Substance: BUPIVACAINE
     Dosage: 42.094 MG, \DAY
     Dates: start: 20151029
  5. CLONIDINE. [Suspect]
     Active Substance: CLONIDINE
     Dosage: 134.12 ?G, \DAY
     Route: 037
     Dates: start: 20151029
  6. COMPOUNDED BACLOFEN [Suspect]
     Active Substance: BACLOFEN
     Dosage: 134.12 ?G, \DAY
     Route: 037
     Dates: start: 20151029
  7. COMPOUNDED BACLOFEN [Suspect]
     Active Substance: BACLOFEN
     Dosage: 210.47 ?G, \DAY
     Dates: start: 20151029
  8. DILAUDID [Suspect]
     Active Substance: HYDROMORPHONE HYDROCHLORIDE
     Dosage: 2.6823 MG, \DAY
     Route: 037
     Dates: start: 20151029

REACTIONS (1)
  - Implant site pain [Recovered/Resolved]

NARRATIVE: CASE EVENT DATE: 20151223
